FAERS Safety Report 8478600-1 (Version None)
Quarter: 2012Q2

REPORT INFORMATION
  Report Type: 
  Country: None (occurrence: None)
  Receive Date: 20120629
  Receipt Date: 20120627
  Transmission Date: 20120825
  Serious: Yes (Death, Other)
  Sender: FDA-Public Use
  Company Number: PHHY2012JP055198

PATIENT
  Age: 54 Year
  Sex: Male

DRUGS (1)
  1. OMEPRAZOLE [Suspect]
     Indication: GASTRIC HAEMORRHAGE

REACTIONS (7)
  - LIP HAEMORRHAGE [None]
  - CONJUNCTIVITIS [None]
  - MULTI-ORGAN FAILURE [None]
  - CORNEAL EPITHELIUM DEFECT [None]
  - TOXIC EPIDERMAL NECROLYSIS [None]
  - RASH ERYTHEMATOUS [None]
  - SKIN EXFOLIATION [None]
